FAERS Safety Report 5215893-8 (Version None)
Quarter: 2007Q1

REPORT INFORMATION
  Report Type: 
  Country: None (occurrence: None)
  Receive Date: 20070118
  Receipt Date: 20070108
  Transmission Date: 20070707
  Serious: Yes (Hospitalization)
  Sender: FDA-Public Use
  Company Number: 163-21880-06120135

PATIENT
  Age: 51 Year
  Sex: Female

DRUGS (5)
  1. REVLIMID [Suspect]
     Indication: MULTIPLE MYELOMA
     Dosage: 15 MG, X  21 DAYS, ORAL; 25 MG, X 14 DAYS, ORAL
     Route: 048
     Dates: start: 20061010, end: 20061101
  2. REVLIMID [Suspect]
     Indication: MULTIPLE MYELOMA
     Dosage: 15 MG, X  21 DAYS, ORAL; 25 MG, X 14 DAYS, ORAL
     Route: 048
     Dates: start: 20070101
  3. TRIMETHOPRIM [Concomitant]
  4. SULFAMETHOXAZOLE [Concomitant]
  5. DEXAMETHASONE TAB [Concomitant]

REACTIONS (8)
  - DIALYSIS [None]
  - HYPOTENSION [None]
  - METABOLIC ACIDOSIS [None]
  - PNEUMONIA [None]
  - RENAL FAILURE [None]
  - RENAL TUBULAR NECROSIS [None]
  - RESPIRATORY FAILURE [None]
  - TRACHEOBRONCHITIS [None]
